FAERS Safety Report 6429550-3 (Version None)
Quarter: 2009Q4

REPORT INFORMATION
  Report Type: 
  Country: None (occurrence: None)
  Receive Date: 20091103
  Receipt Date: 20091027
  Transmission Date: 20100525
  Serious: Yes (Hospitalization)
  Sender: FDA-Public Use
  Company Number: 2009SP033202

PATIENT
  Age: 56 Year
  Sex: Female

DRUGS (2)
  1. PEG-INTRON (PEGINTERFERON ALFA-2B) [Suspect]
     Indication: HEPATITIS C
     Dates: start: 20090920
  2. RIBAVIRIN [Suspect]
     Indication: HEPATITIS C
     Dates: start: 20090920

REACTIONS (2)
  - BARRETT'S OESOPHAGUS [None]
  - CHOLELITHIASIS [None]
